FAERS Safety Report 17647989 (Version 2)
Quarter: 2020Q2

REPORT INFORMATION
  Report Type: Spontaneous
  Country: US (occurrence: US)
  Receive Date: 20200408
  Receipt Date: 20200416
  Transmission Date: 20200713
  Serious: Yes (Death, Hospitalization)
  Sender: FDA-Public Use
  Company Number: US-ALLERGAN-2014547US

PATIENT
  Sex: Female

DRUGS (4)
  1. NORCO [Suspect]
     Active Substance: ACETAMINOPHEN\HYDROCODONE BITARTRATE
     Indication: NEURALGIA
     Dosage: 8 DF, QD
     Route: 048
     Dates: start: 2002
  2. FLECTOR [Concomitant]
     Active Substance: DICLOFENAC EPOLAMINE
     Indication: NEURALGIA
     Dosage: 1.3 % DAILY OR EVERY OTHER DAY
     Route: 062
     Dates: start: 2002
  3. BUTRANS [Concomitant]
     Active Substance: BUPRENORPHINE
     Indication: NEURALGIA
     Dosage: 20 MG, QD
     Route: 062
     Dates: start: 2002
  4. HYDROMORPHONE [Concomitant]
     Active Substance: HYDROMORPHONE
     Indication: NEURALGIA
     Dosage: 4 MG, QD
     Dates: start: 2002

REACTIONS (7)
  - Multiple organ dysfunction syndrome [Fatal]
  - Renal failure [Fatal]
  - Sepsis [Fatal]
  - Pallor [Unknown]
  - Urine output decreased [Unknown]
  - Feeling abnormal [Unknown]
  - Dizziness [Unknown]

NARRATIVE: CASE EVENT DATE: 201408
